FAERS Safety Report 10913660 (Version 1)
Quarter: 2015Q1

REPORT INFORMATION
  Report Type: Spontaneous
  Country: FR (occurrence: FR)
  Receive Date: 20150313
  Receipt Date: 20150313
  Transmission Date: 20150721
  Serious: Yes (Other)
  Sender: FDA-Public Use
  Company Number: FR-TEVA-546931ISR

PATIENT

DRUGS (3)
  1. BLEOMYCIN [Suspect]
     Active Substance: BLEOMYCIN SULFATE
     Indication: GERM CELL CANCER
     Dosage: 15 MILLIGRAM DAILY; 15 MG/DAY ON D1-5, REPEATED EVERY 3WK
     Route: 042
  2. CISPLATIN. [Suspect]
     Active Substance: CISPLATIN
     Indication: GERM CELL CANCER
     Dosage: 20 MG/M2 DAILY; 20 MG/M2 ON D1-5, REPEATED EVERY 3WK
     Route: 065
  3. ETOPOSIDE. [Suspect]
     Active Substance: ETOPOSIDE
     Indication: GERM CELL CANCER
     Dosage: 100 MG/M2 DAILY; 100 MG/M2 ON D1-5, REPEATED EVERY 3WK
     Route: 065

REACTIONS (1)
  - Myelodysplastic syndrome [Unknown]
